FAERS Safety Report 11801338 (Version 1)
Quarter: 2015Q4

REPORT INFORMATION
  Report Type: Spontaneous
  Country: US (occurrence: US)
  Receive Date: 20151204
  Receipt Date: 20151204
  Transmission Date: 20160305
  Serious: Yes (Death)
  Sender: FDA-Public Use
  Company Number: US-ROCHE-1671871

PATIENT
  Sex: Male

DRUGS (3)
  1. XELODA [Suspect]
     Active Substance: CAPECITABINE
     Indication: ABDOMINAL DISTENSION
     Route: 065
     Dates: start: 20151110, end: 20151118
  2. CHLORPROMAZIN [Concomitant]
     Route: 065
  3. HYDROCODONE/APAP [Concomitant]
     Active Substance: ACETAMINOPHEN\HYDROCODONE BITARTRATE
     Dosage: TABLET 7.5 - 325.
     Route: 065

REACTIONS (1)
  - Death [Fatal]
